FAERS Safety Report 18161985 (Version 1)
Quarter: 2020Q3

REPORT INFORMATION
  Report Type: Spontaneous
  Country: US (occurrence: US)
  Receive Date: 20200817
  Receipt Date: 20200817
  Transmission Date: 20201103
  Serious: No
  Sender: FDA-Public Use
  Company Number: None

PATIENT
  Sex: Female
  Weight: 48.3 kg

DRUGS (6)
  1. VINCRISTINE SULFATE. [Suspect]
     Active Substance: VINCRISTINE SULFATE
     Dates: end: 20200804
  2. METHOTREXATE. [Suspect]
     Active Substance: METHOTREXATE
     Dates: end: 20200804
  3. DAUNORUBICIN [Suspect]
     Active Substance: DAUNORUBICIN
     Dates: end: 20200804
  4. ONCASPAR [Suspect]
     Active Substance: PEGASPARGASE
     Dates: end: 20200731
  5. DEXAMETHASONE. [Suspect]
     Active Substance: DEXAMETHASONE
     Dates: end: 20200803
  6. CYTARABINE. [Suspect]
     Active Substance: CYTARABINE
     Dates: end: 20200728

REACTIONS (1)
  - Hypotension [None]

NARRATIVE: CASE EVENT DATE: 20200808
